FAERS Safety Report 9302765 (Version 1)
Quarter: 2013Q2

REPORT INFORMATION
  Report Type: Report from Study
  Country: AR (occurrence: AR)
  Receive Date: 20130522
  Receipt Date: 20130522
  Transmission Date: 20140414
  Serious: Yes (Death)
  Sender: FDA-Public Use
  Company Number: PHHY2013AR050841

PATIENT
  Age: 80 Year
  Sex: Male

DRUGS (1)
  1. STALEVO [Suspect]
     Dosage: 100 UKN, UNK

REACTIONS (1)
  - Prostate cancer [Fatal]
